FAERS Safety Report 18444707 (Version 1)
Quarter: 2020Q4

REPORT INFORMATION
  Report Type: Other
  Country: DE (occurrence: DE)
  Receive Date: 20201030
  Receipt Date: 20201030
  Transmission Date: 20210114
  Serious: Yes (Life-Threatening)
  Sender: FDA-Public Use
  Company Number: DE-ORCHID HEALTHCARE-2093412

PATIENT
  Age: 51 Year
  Sex: Female

DRUGS (1)
  1. OLANZAPINE. [Suspect]
     Active Substance: OLANZAPINE
     Route: 065

REACTIONS (9)
  - Oedema [Not Recovered/Not Resolved]
  - Overdose [Unknown]
  - Coma [Not Recovered/Not Resolved]
  - Toxicity to various agents [Unknown]
  - Basal ganglia haemorrhage [Not Recovered/Not Resolved]
  - Quadriparesis [Not Recovered/Not Resolved]
  - Apallic syndrome [Not Recovered/Not Resolved]
  - Neuroleptic malignant syndrome [Not Recovered/Not Resolved]
  - Suicide attempt [Unknown]
